FAERS Safety Report 8822281 (Version 2)
Quarter: 2012Q4

REPORT INFORMATION
  Report Type: 
  Country: AU (occurrence: AU)
  Receive Date: 20121003
  Receipt Date: 20121111
  Transmission Date: 20130627
  Serious: Yes (Other)
  Sender: FDA-Public Use
  Company Number: PHHY2012AU082912

PATIENT
  Sex: Female
  Weight: 56.69 kg

DRUGS (2)
  1. ESTALIS [Suspect]
     Indication: HORMONE REPLACEMENT THERAPY
     Dosage: One patch, every 3-4 day
     Route: 062
     Dates: start: 20120629, end: 20120920
  2. ESTALIS [Suspect]
     Indication: MENOPAUSAL SYMPTOMS

REACTIONS (1)
  - Vaginal haemorrhage [Recovered/Resolved]
